FAERS Safety Report 18576660 (Version 7)
Quarter: 2021Q1

REPORT INFORMATION
  Report Type: Report from Study
  Country: IT (occurrence: IT)
  Receive Date: 20201203
  Receipt Date: 20210326
  Transmission Date: 20210419
  Serious: Yes (Hospitalization, Other)
  Sender: FDA-Public Use
  Company Number: IT-BRISTOL-MYERS SQUIBB COMPANY-BMS-2020-100973

PATIENT
  Age: 59 Year
  Sex: Male
  Weight: 113 kg

DRUGS (11)
  1. NIVOLUMAB [Suspect]
     Active Substance: NIVOLUMAB
     Indication: MALIGNANT MELANOMA
     Dosage: 109 MILLIGRAM
     Route: 042
     Dates: start: 20201019, end: 20201207
  2. RECOMBINANT HUMAN HYALURONIDASE ENZYME PH20 [Suspect]
     Active Substance: HYALURONIDASE (HUMAN RECOMBINANT)
     Indication: MALIGNANT MELANOMA
     Dosage: 18400 UNIT
     Route: 058
     Dates: start: 20200928, end: 20200928
  3. IPILIMUMAB [Suspect]
     Active Substance: IPILIMUMAB
     Indication: MALIGNANT MELANOMA
     Dosage: 327 MILLIGRAM
     Route: 042
     Dates: start: 20201019, end: 20201207
  4. VORTIOXETINE. [Concomitant]
     Active Substance: VORTIOXETINE
     Indication: PRODUCT USED FOR UNKNOWN INDICATION
     Dosage: 10 MILLIGRAM
     Route: 048
     Dates: start: 2017
  5. SIDERAL FORTE [Concomitant]
     Active Substance: ASCORBIC ACID\FERRIC PYROPHOSPHATE
     Indication: ANAEMIA
     Dosage: 1 DOSAGE FORM
     Route: 048
     Dates: start: 20201110
  6. TAPAZOLE [Concomitant]
     Active Substance: METHIMAZOLE
     Indication: HYPERTHYROIDISM
     Dosage: 1 DOSAGE FORM (1 DF = 4 UNITS NOS)
     Route: 048
     Dates: start: 20201121, end: 20201126
  7. INDERAL [Concomitant]
     Active Substance: PROPRANOLOL HYDROCHLORIDE
     Indication: HYPERTHYROIDISM
     Dosage: 40 MILLIGRAM
     Route: 048
     Dates: start: 20201118
  8. RABEPRAZOLE [Concomitant]
     Active Substance: RABEPRAZOLE
     Indication: PRODUCT USED FOR UNKNOWN INDICATION
     Dosage: 20 MILLIGRAM
     Route: 048
     Dates: start: 2018
  9. TAPAZOLE [Concomitant]
     Active Substance: METHIMAZOLE
     Indication: HYPERTHYROIDISM
     Dosage: 1 DOSAGE FORM = 6 UNITS NOS
     Route: 048
     Dates: start: 20201118, end: 20201120
  10. SIMVASTATINE [Concomitant]
     Active Substance: SIMVASTATIN
     Indication: PRODUCT USED FOR UNKNOWN INDICATION
     Dosage: 20 MILLIGRAM
     Route: 048
     Dates: start: 2018
  11. IPILIMUMAB SUBCUTANEOUS [Suspect]
     Active Substance: IPILIMUMAB
     Indication: MALIGNANT MELANOMA
     Dosage: 452 MILLIGRAM
     Route: 058
     Dates: start: 20200928, end: 20200928

REACTIONS (2)
  - Immune-mediated myositis [Recovered/Resolved]
  - Immune-mediated hepatitis [Recovered/Resolved]

NARRATIVE: CASE EVENT DATE: 20201124
